FAERS Safety Report 25896064 (Version 1)
Quarter: 2025Q4

REPORT INFORMATION
  Report Type: Spontaneous
  Country: US (occurrence: US)
  Receive Date: 20251008
  Receipt Date: 20251008
  Transmission Date: 20260118
  Serious: Yes (Death, Other)
  Sender: AMGEN
  Company Number: US-AMGEN-USASP2025196161

PATIENT

DRUGS (9)
  1. PREDNISONE [Suspect]
     Active Substance: PREDNISONE
     Indication: Acute graft versus host disease in skin
     Dosage: 1 MILLIGRAM/KILOGRAM, QD
     Route: 065
  2. PREDNISONE [Suspect]
     Active Substance: PREDNISONE
     Indication: Acute graft versus host disease in intestine
  3. PREDNISONE [Suspect]
     Active Substance: PREDNISONE
     Indication: Acute graft versus host disease in liver
  4. PREDNISONE [Suspect]
     Active Substance: PREDNISONE
     Indication: Chronic graft versus host disease
  5. FILGRASTIM [Suspect]
     Active Substance: FILGRASTIM
     Indication: Haematopoietic stem cell mobilisation
     Dosage: UNK
     Route: 065
  6. IZICOPAN [Suspect]
     Active Substance: IZICOPAN
     Indication: Acute graft versus host disease in skin
     Dosage: UNK (MILLIGRAM/SQ. METER)
     Route: 040
  7. IZICOPAN [Suspect]
     Active Substance: IZICOPAN
     Indication: Acute graft versus host disease in intestine
     Dosage: UNK (MILLIGRAM) (FOR 4 WEEKS)
     Route: 048
  8. IZICOPAN [Suspect]
     Active Substance: IZICOPAN
     Indication: Acute graft versus host disease in liver
  9. IZICOPAN [Suspect]
     Active Substance: IZICOPAN
     Indication: Chronic graft versus host disease

REACTIONS (34)
  - Sepsis [Fatal]
  - Death [Fatal]
  - Acute graft versus host disease [Fatal]
  - Recurrent cancer [Fatal]
  - Cardiogenic shock [Fatal]
  - Pericardial effusion [Fatal]
  - Cardiac tamponade [Fatal]
  - Viral pericarditis [Fatal]
  - Acute graft versus host disease in liver [Unknown]
  - Viral haemorrhagic cystitis [Unknown]
  - Thrombocytopenia [Unknown]
  - Leukopenia [Unknown]
  - Hypertriglyceridaemia [Unknown]
  - Anaemia [Unknown]
  - Toxic epidermal necrolysis [Unknown]
  - Hyperglycaemia [Unknown]
  - Cerebral ischaemia [Unknown]
  - Hepatobiliary disease [Unknown]
  - Streptococcal abscess [Unknown]
  - Cytomegalovirus infection reactivation [Unknown]
  - Epstein-Barr virus infection reactivation [Unknown]
  - Acute graft versus host disease in skin [Unknown]
  - Venoocclusive liver disease [Unknown]
  - Staphylococcal bacteraemia [Unknown]
  - Klebsiella bacteraemia [Unknown]
  - Escherichia urinary tract infection [Unknown]
  - Varicella zoster virus infection [Unknown]
  - Therapy partial responder [Unknown]
  - Candida infection [Unknown]
  - Metapneumovirus infection [Unknown]
  - Influenza [Unknown]
  - Hypercholesterolaemia [Unknown]
  - Hyponatraemia [Unknown]
  - Fatigue [Unknown]
